FAERS Safety Report 22170654 (Version 1)
Quarter: 2023Q2

REPORT INFORMATION
  Report Type: Report from Study
  Country: BR (occurrence: BR)
  Receive Date: 20230404
  Receipt Date: 20230404
  Transmission Date: 20230721
  Serious: Yes (Hospitalization)
  Sender: FDA-Public Use
  Company Number: BR-UCBSA-2023017024

PATIENT
  Sex: Female

DRUGS (1)
  1. CERTOLIZUMAB PEGOL [Suspect]
     Active Substance: CERTOLIZUMAB PEGOL
     Indication: Ankylosing spondylitis
     Route: 058

REACTIONS (1)
  - Urinary tract infection [Not Recovered/Not Resolved]
